FAERS Safety Report 22019345 (Version 2)
Quarter: 2023Q1

REPORT INFORMATION
  Report Type: Spontaneous
  Country: US (occurrence: US)
  Receive Date: 20230222
  Receipt Date: 20230228
  Transmission Date: 20230418
  Serious: Yes (Hospitalization, Other)
  Sender: FDA-Public Use
  Company Number: US-AMGEN-USASP2023030239

PATIENT
  Age: 70 Year
  Sex: Female

DRUGS (15)
  1. OTEZLA [Suspect]
     Active Substance: APREMILAST
     Indication: Behcet^s syndrome
     Dosage: 30 MILLIGRAM, BID
     Route: 065
     Dates: start: 2020
  2. CELECOXIB [Concomitant]
     Active Substance: CELECOXIB
     Dosage: 100 MILLIGRAM, BID
  3. CYCLOBENZAPRINE [Concomitant]
     Active Substance: CYCLOBENZAPRINE
     Dosage: 5 MILLIGRAM
  4. FLUTICASONE [Concomitant]
     Active Substance: FLUTICASONE
     Dosage: 50 MICROGRAM, QD
  5. IPRATROPIUM [Concomitant]
     Active Substance: IPRATROPIUM
     Dosage: UNK UNK, TID
  6. VALACYCLOVIR [Concomitant]
     Active Substance: VALACYCLOVIR HYDROCHLORIDE
     Dosage: 1 GRAM, QD
  7. SACCHAROMYCES CEREVISIAE [Concomitant]
     Active Substance: SACCHAROMYCES CEREVISIAE
     Dosage: 250 MILLIGRAM
  8. VITAMIN B12 [Concomitant]
     Active Substance: CYANOCOBALAMIN
     Dosage: 1000 MICROGRAM
  9. FLAXSEED [Concomitant]
     Active Substance: FLAX SEED
     Dosage: 1000 MILLIGRAM
  10. ASPIRIN [Concomitant]
     Active Substance: ASPIRIN
     Dosage: 81 MILLIGRAM
  11. BIOTIN [Concomitant]
     Active Substance: BIOTIN
     Dosage: 5 MILLIGRAM
  12. CETIRIZINE [Concomitant]
     Active Substance: CETIRIZINE HYDROCHLORIDE
     Dosage: 10 MILLIGRAM
  13. FISH OIL [Concomitant]
     Active Substance: FISH OIL
     Dosage: 500 MILLIGRAM
  14. VITAMINS [Concomitant]
     Active Substance: VITAMINS
  15. VITAMIN D3 [Concomitant]
     Active Substance: CHOLECALCIFEROL
     Dosage: 1000 UNIT

REACTIONS (2)
  - Rheumatoid arthritis [Not Recovered/Not Resolved]
  - Behcet^s syndrome [Not Recovered/Not Resolved]

NARRATIVE: CASE EVENT DATE: 20230216
